FAERS Safety Report 8760117 (Version 1)
Quarter: 2012Q4

REPORT INFORMATION
  Report Type: Spontaneous
  Country: US (occurrence: None)
  Receive Date: 20120829
  Receipt Date: 20120829
  Transmission Date: 20130627
  Serious: Yes (Disabling)
  Sender: FDA-Public Use
  Company Number: None

PATIENT
  Age: 74 Year
  Sex: Female
  Weight: 58.97 kg

DRUGS (1)
  1. PROLIA [Suspect]
     Indication: OSTEOPOROSIS
     Dosage: 1 shot, 6 months 030
     Dates: start: 20120508, end: 20120508

REACTIONS (17)
  - Headache [None]
  - Back pain [None]
  - Bone pain [None]
  - Eye irritation [None]
  - Rash [None]
  - Oropharyngeal pain [None]
  - Lymphadenopathy [None]
  - Thinking abnormal [None]
  - Memory impairment [None]
  - Confusional state [None]
  - Abnormal dreams [None]
  - Abdominal distension [None]
  - Depression [None]
  - Hypertension [None]
  - Coordination abnormal [None]
  - Feeling abnormal [None]
  - Disturbance in attention [None]
